FAERS Safety Report 10229510 (Version 1)
Quarter: 2014Q2

REPORT INFORMATION
  Report Type: Spontaneous
  Country: US (occurrence: US)
  Receive Date: 20140611
  Receipt Date: 20140611
  Transmission Date: 20141212
  Serious: No
  Sender: FDA-Public Use
  Company Number: US-ASTRAZENECA-2014SE38771

PATIENT
  Age: 88 Year
  Sex: Female

DRUGS (1)
  1. FASLODEX [Suspect]
     Route: 048
     Dates: start: 2012

REACTIONS (1)
  - Endometrial hypertrophy [Unknown]
